FAERS Safety Report 16983615 (Version 1)
Quarter: 2019Q4

REPORT INFORMATION
  Report Type: Spontaneous
  Country: FR (occurrence: FR)
  Receive Date: 20191101
  Receipt Date: 20191101
  Transmission Date: 20200122
  Serious: Yes (Hospitalization)
  Sender: FDA-Public Use
  Company Number: FR-PFIZER INC-2019470856

PATIENT
  Age: 67 Year
  Sex: Male
  Weight: 101 kg

DRUGS (4)
  1. NOVONORM [Concomitant]
     Active Substance: REPAGLINIDE
     Indication: TYPE 2 DIABETES MELLITUS
     Dosage: 1 DF, DAILY
     Dates: start: 20110615
  2. KARDEGIC [Concomitant]
     Active Substance: ASPIRIN DL-LYSINE
     Dosage: 1 DF, DAILY
     Dates: end: 20181023
  3. IBUPROFEN. [Suspect]
     Active Substance: IBUPROFEN
     Indication: INTERVERTEBRAL DISC PROTRUSION
     Dosage: 800 MG, DAILY
     Dates: start: 20181015, end: 20181022
  4. METFORMIN [Concomitant]
     Active Substance: METFORMIN HYDROCHLORIDE
     Indication: TYPE 2 DIABETES MELLITUS
     Dosage: 1 G, DAILY
     Dates: start: 20110615, end: 20181023

REACTIONS (2)
  - Acute kidney injury [Recovering/Resolving]
  - Anuria [Recovered/Resolved]

NARRATIVE: CASE EVENT DATE: 20181021
